FAERS Safety Report 19835096 (Version 2)
Quarter: 2021Q3

REPORT INFORMATION
  Report Type: Spontaneous
  Country: US (occurrence: US)
  Receive Date: 20210915
  Receipt Date: 20210924
  Transmission Date: 20211014
  Serious: Yes (Other)
  Sender: FDA-Public Use
  Company Number: US-PFIZER INC-2021051433

PATIENT
  Age: 59 Year
  Sex: Female

DRUGS (1)
  1. LYRICA [Suspect]
     Active Substance: PREGABALIN
     Indication: FIBROMYALGIA
     Dosage: UNK

REACTIONS (9)
  - Anxiety [Unknown]
  - Depression [Unknown]
  - Hernia [Unknown]
  - Product dispensing error [Unknown]
  - Cough [Unknown]
  - Headache [Unknown]
  - Asthma [Unknown]
  - Hypersensitivity [Unknown]
  - Drug hypersensitivity [Unknown]
